FAERS Safety Report 8973906 (Version 1)
Quarter: 2012Q4

REPORT INFORMATION
  Report Type: 
  Country: GB (occurrence: GB)
  Receive Date: 20121218
  Receipt Date: 20121218
  Transmission Date: 20130627
  Serious: Yes (Life-Threatening, Hospitalization, Disabling)
  Sender: FDA-Public Use
  Company Number: GB-GLAXOSMITHKLINE-B0852250A

PATIENT
  Age: 33 Year
  Sex: Female
  Weight: 77 kg

DRUGS (3)
  1. SEROXAT [Suspect]
     Indication: DEPRESSION
     Route: 048
     Dates: start: 19981020
  2. SEROXAT [Suspect]
     Indication: DEPRESSION
     Route: 048
  3. SEROXAT [Suspect]
     Indication: DEPRESSION
     Route: 048

REACTIONS (7)
  - Withdrawal syndrome [Not Recovered/Not Resolved]
  - Anger [Not Recovered/Not Resolved]
  - Dizziness [Unknown]
  - Suicide attempt [Unknown]
  - Pain [Unknown]
  - Feeling abnormal [Unknown]
  - Emotional disorder [Unknown]
